FAERS Safety Report 9080926 (Version 1)
Quarter: 2013Q1

REPORT INFORMATION
  Report Type: Spontaneous
  Country: US (occurrence: US)
  Receive Date: 20130130
  Receipt Date: 20130130
  Transmission Date: 20140127
  Serious: No
  Sender: FDA-Public Use
  Company Number: US-ABBOTT-12P-163-0977842-00

PATIENT
  Age: 50 None
  Sex: Female
  Weight: 64.92 kg

DRUGS (2)
  1. HUMIRA [Suspect]
     Indication: RHEUMATOID ARTHRITIS
     Route: 058
     Dates: start: 201202, end: 201206
  2. HUMIRA [Suspect]
     Dates: start: 201206

REACTIONS (4)
  - Wrong technique in drug usage process [Unknown]
  - Muscle spasms [Unknown]
  - Rheumatoid arthritis [Unknown]
  - Alopecia [Not Recovered/Not Resolved]
